FAERS Safety Report 15860564 (Version 1)
Quarter: 2019Q1

REPORT INFORMATION
  Report Type: Spontaneous
  Country: BE (occurrence: BE)
  Receive Date: 20190123
  Receipt Date: 20190123
  Transmission Date: 20190417
  Serious: Yes (Other)
  Sender: FDA-Public Use
  Company Number: BE-ALKEM LABORATORIES LIMITED-BE-ALKEM-2018-10025

PATIENT
  Age: 49 Year
  Sex: Female

DRUGS (4)
  1. LAMIVUDINE. [Concomitant]
     Active Substance: LAMIVUDINE
     Indication: HIV INFECTION
     Dosage: 150 MG, BID
     Route: 065
  2. INDINAVIR/RITONAVIR [Concomitant]
     Active Substance: INDINAVIR\RITONAVIR
     Indication: HIV INFECTION
     Dosage: 600/100 MG, BID
     Route: 065
  3. RETROVIR [Concomitant]
     Active Substance: ZIDOVUDINE
     Indication: HIV INFECTION
     Dosage: 250 MG, BID
     Route: 065
  4. TRIAMCINOLONE ACETONIDE. [Suspect]
     Active Substance: TRIAMCINOLONE ACETONIDE
     Indication: PERIARTHRITIS
     Dosage: 40 MG, SINGLE INJECTION IN RIGHT SHOULDER
     Route: 014
     Dates: start: 201408

REACTIONS (3)
  - Cushing^s syndrome [Recovered/Resolved]
  - Hypothalamic pituitary adrenal axis suppression [Recovered/Resolved]
  - Secondary adrenocortical insufficiency [Recovered/Resolved]
